FAERS Safety Report 23295120 (Version 1)
Quarter: 2023Q4

REPORT INFORMATION
  Report Type: Report from Study
  Country: CH (occurrence: CH)
  Receive Date: 20231213
  Receipt Date: 20231213
  Transmission Date: 20240110
  Serious: Yes (Death)
  Sender: FDA-Public Use
  Company Number: CH-ABBVIE-5536410

PATIENT
  Age: 80 Year
  Sex: Male

DRUGS (3)
  1. CARBIDOPA\LEVODOPA [Suspect]
     Active Substance: CARBIDOPA\LEVODOPA
     Indication: Parkinson^s disease
     Dosage: MD: 4.4 ML, CRD: 2.1 ML/H, ED: 1.0 ML?FREQUENCY TEXT: 16H THERAPY?END DATE- 10 DEC 2023
     Route: 050
     Dates: start: 20231118, end: 202312
  2. CARBIDOPA\LEVODOPA [Suspect]
     Active Substance: CARBIDOPA\LEVODOPA
     Dosage: FREQUENCY TEXT: 24H THERAPY
     Route: 050
     Dates: start: 20201117
  3. CARBIDOPA\LEVODOPA [Suspect]
     Active Substance: CARBIDOPA\LEVODOPA
     Dosage: MD: 4.4 ML, CRD: 2.2 ML/H, ED: 1.0 ML?FREQUENCY TEXT: 16H THERAPY
     Route: 050
     Dates: start: 20231118, end: 202312

REACTIONS (2)
  - Respiratory tract infection [Fatal]
  - Suspected COVID-19 [Fatal]

NARRATIVE: CASE EVENT DATE: 20231210
